FAERS Safety Report 6344495-5 (Version None)
Quarter: 2009Q3

REPORT INFORMATION
  Report Type: 
  Country: None (occurrence: None)
  Receive Date: 20090908
  Receipt Date: 20090825
  Transmission Date: 20100115
  Serious: Yes (Hospitalization)
  Sender: FDA-Public Use
  Company Number: US-PFIZER INC-2009260356

PATIENT
  Sex: Male
  Weight: 43.855 kg

DRUGS (15)
  1. DIFLUCAN [Suspect]
     Indication: MENINGITIS STREPTOCOCCAL
     Dosage: 400 MG, UNK
     Route: 042
     Dates: start: 20090802
  2. FLUCONAZOLE [Suspect]
     Dosage: 600 MG, 1X/DAY
     Route: 048
     Dates: start: 20090820, end: 20090825
  3. TYLENOL (CAPLET) [Concomitant]
     Dosage: UNK
  4. ALTEPLASE [Concomitant]
     Dosage: UNK
  5. DONNATAL [Concomitant]
     Dosage: UNK
  6. NEXIUM [Concomitant]
     Dosage: UNK
  7. FERROUS SULFATE [Concomitant]
     Dosage: UNK
  8. HEPARIN SODIUM [Concomitant]
     Dosage: UNK
  9. INSULIN [Concomitant]
     Dosage: UNK
  10. LORTAB [Concomitant]
     Dosage: UNK
  11. POTASSIUM CHLORIDE [Concomitant]
     Dosage: UNK
  12. MAGNESIUM SULFATE [Concomitant]
     Dosage: UNK
  13. ZOFRAN [Concomitant]
     Dosage: UNK
  14. PROMETHAZINE [Concomitant]
     Dosage: UNK
  15. SPIRONOLACTONE [Concomitant]
     Dosage: UNK

REACTIONS (1)
  - SINUS ARREST [None]
